FAERS Safety Report 7824320-3 (Version None)
Quarter: 2011Q4

REPORT INFORMATION
  Report Type: 
  Country: None (occurrence: None)
  Receive Date: 20111014
  Receipt Date: 20111005
  Transmission Date: 20120403
  Serious: Yes (Death, Other)
  Sender: FDA-Public Use
  Company Number: 2011MA006516

PATIENT
  Age: 43 Year
  Sex: Male

DRUGS (5)
  1. METHADONE HCL [Suspect]
  2. BENZODIAZEPINE [Concomitant]
  3. CLOZARIL [Suspect]
     Indication: SCHIZOPHRENIA
     Dosage: PO
     Route: 048
     Dates: start: 20080204
  4. DIAZEPAM [Suspect]
     Dosage: 10 MG;QD;PO
     Route: 048
  5. HEROIN [Concomitant]

REACTIONS (6)
  - CIRCULATORY COLLAPSE [None]
  - MULTIPLE DRUG OVERDOSE [None]
  - GENERAL PHYSICAL CONDITION ABNORMAL [None]
  - SUDDEN DEATH [None]
  - CHRONIC OBSTRUCTIVE PULMONARY DISEASE [None]
  - ALCOHOL USE [None]
